FAERS Safety Report 14177789 (Version 1)
Quarter: 2017Q4

REPORT INFORMATION
  Report Type: Spontaneous
  Country: US (occurrence: US)
  Receive Date: 20171110
  Receipt Date: 20171110
  Transmission Date: 20180321
  Serious: No
  Sender: FDA-Public Use
  Company Number: US-MALLINCKRODT-T201702390

PATIENT
  Sex: Male

DRUGS (1)
  1. DEXTROAMPHET SACCHARAT, AMPHET ASPARTATE, DEXTROAMPHET SULFATE AND AMPHET SULFAT [Suspect]
     Active Substance: AMPHETAMINE ASPARTATE\AMPHETAMINE SULFATE\DEXTROAMPHETAMINE SACCHARATE\DEXTROAMPHETAMINE SULFATE
     Indication: PRODUCT USED FOR UNKNOWN INDICATION
     Dosage: 20 MG
     Route: 065

REACTIONS (10)
  - Migraine [Unknown]
  - Lip swelling [Unknown]
  - Agitation [Unknown]
  - Vomiting [Unknown]
  - Fatigue [Unknown]
  - Urticaria [Unknown]
  - Dizziness [Unknown]
  - Dry mouth [Unknown]
  - Product substitution issue [Unknown]
  - Irritability [Unknown]
